FAERS Safety Report 25020940 (Version 2)
Quarter: 2025Q3

REPORT INFORMATION
  Report Type: Spontaneous
  Country: RU (occurrence: RU)
  Receive Date: 20250227
  Receipt Date: 20250802
  Transmission Date: 20251021
  Serious: Yes (Other)
  Sender: ALEXION PHARMACEUTICALS
  Company Number: RU-ASTRAZENECA-202502RUS017940RU

PATIENT
  Sex: Female

DRUGS (1)
  1. CRESTOR [Suspect]
     Active Substance: ROSUVASTATIN CALCIUM
     Route: 065

REACTIONS (6)
  - Libido decreased [Unknown]
  - Hypomenorrhoea [Unknown]
  - Fatigue [Unknown]
  - Memory impairment [Unknown]
  - Disturbance in attention [Unknown]
  - Performance status decreased [Unknown]
